FAERS Safety Report 6138297-2 (Version None)
Quarter: 2009Q1

REPORT INFORMATION
  Report Type: 
  Country: None (occurrence: None)
  Receive Date: 20090331
  Receipt Date: 20090327
  Transmission Date: 20090719
  Serious: Yes (Death, Hospitalization)
  Sender: FDA-Public Use
  Company Number: PHHY2009CA07144

PATIENT
  Sex: Male

DRUGS (2)
  1. EXJADE [Suspect]
     Indication: MYELODYSPLASTIC SYNDROME
     Dosage: UNK
     Route: 048
     Dates: start: 20080625
  2. EXJADE [Suspect]
     Indication: IRON OVERLOAD

REACTIONS (4)
  - CHRONIC MYELOMONOCYTIC LEUKAEMIA [None]
  - DISEASE PROGRESSION [None]
  - HEPATIC FAILURE [None]
  - MYELOPROLIFERATIVE DISORDER [None]
